FAERS Safety Report 8379133-3 (Version None)
Quarter: 2012Q1

REPORT INFORMATION
  Report Type: 
  Country: None (occurrence: None)
  Receive Date: 20120323
  Receipt Date: 20110323
  Transmission Date: 20120608
  Serious: Yes (Other)
  Sender: FDA-Public Use
  Company Number: 163-21880-11032851

PATIENT
  Age: 71 Year
  Sex: Female
  Weight: 94.5 kg

DRUGS (2)
  1. REVLIMID [Suspect]
     Indication: MULTIPLE MYELOMA
     Dosage: 25 MG, DAILY FOR 21 DAYS 1 WEEK, PO
     Route: 048
     Dates: start: 20080103
  2. ZOMETA [Concomitant]

REACTIONS (1)
  - TOOTH INFECTION [None]
